FAERS Safety Report 7824083-1 (Version None)
Quarter: 2011Q4

REPORT INFORMATION
  Report Type: 
  Country: None (occurrence: None)
  Receive Date: 20111019
  Receipt Date: 20111006
  Transmission Date: 20120403
  Serious: Yes (Hospitalization)
  Sender: FDA-Public Use
  Company Number: PHEH2011US02222

PATIENT
  Sex: Female

DRUGS (3)
  1. IRON [Concomitant]
  2. MYFORTIC [Suspect]
     Indication: COMPLICATIONS OF TRANSPLANTED LIVER
     Dosage: 720 MG, BID
     Route: 048
  3. TRANSFUSIONS [Concomitant]

REACTIONS (5)
  - MALAISE [None]
  - DECREASED APPETITE [None]
  - FATIGUE [None]
  - TRANSFUSION RELATED COMPLICATION [None]
  - EPISTAXIS [None]
